FAERS Safety Report 25178356 (Version 1)
Quarter: 2025Q2

REPORT INFORMATION
  Report Type: Spontaneous
  Country: GB (occurrence: GB)
  Receive Date: 20250409
  Receipt Date: 20250409
  Transmission Date: 20250716
  Serious: Yes (Other)
  Sender: BOEHRINGER INGELHEIM
  Company Number: GB-MHRA-TPP8620947C11455705YC1744034855985

PATIENT
  Age: 60 Year
  Sex: Female
  Weight: 89 kg

DRUGS (11)
  1. EMPAGLIFLOZIN [Suspect]
     Active Substance: EMPAGLIFLOZIN
     Indication: Ill-defined disorder
     Dates: start: 20241212
  2. BETAMETHASONE VALERATE [Concomitant]
     Active Substance: BETAMETHASONE VALERATE
     Indication: Ill-defined disorder
     Dosage: APPLY UP TO TWICE DAILY?FORM OF ADMIN: TPP YC - PLEASE RECLASSIFY
     Dates: start: 20250306, end: 20250313
  3. ETORICOXIB [Concomitant]
     Active Substance: ETORICOXIB
     Indication: Ill-defined disorder
     Dosage: FORM OF ADMIN: TPP YC - PLEASE RECLASSIFY
     Dates: start: 20250407
  4. MELOXICAM [Concomitant]
     Active Substance: MELOXICAM
     Indication: Ill-defined disorder
  5. ATORVASTATIN [Concomitant]
     Active Substance: ATORVASTATIN
     Indication: Ill-defined disorder
     Dosage: TAKE ONE DAILY?FORM OF ADMIN: TPP YC - PLEASE RECLASSIFY
     Dates: start: 20221205
  6. RABEPRAZOLE [Concomitant]
     Active Substance: RABEPRAZOLE
     Indication: Ill-defined disorder
     Dosage: TAKE ONE TWICE DAILY AS PER DR MITCHELL?FORM OF ADMIN: TPP YC - PLEASE RECLASSIFY
     Dates: start: 20230515
  7. LEVOTHYROXINE [Concomitant]
     Active Substance: LEVOTHYROXINE
     Indication: Ill-defined disorder
     Dosage: TAKE ONE DAILY?FORM OF ADMIN: TPP YC - PLEASE RECLASSIFY
     Dates: start: 20230515
  8. CITALOPRAM [Concomitant]
     Active Substance: CITALOPRAM
     Indication: Ill-defined disorder
     Dosage: TAKE ONE DAILY?FORM OF ADMIN: TPP YC - PLEASE RECLASSIFY
     Dates: start: 20231009
  9. ESTRADIOL [Concomitant]
     Active Substance: ESTRADIOL
     Indication: Ill-defined disorder
  10. HYDROMOL [Concomitant]
     Indication: Ill-defined disorder
  11. ESTRIOL [Concomitant]
     Active Substance: ESTRIOL
     Indication: Ill-defined disorder

REACTIONS (2)
  - Skin exfoliation [Unknown]
  - Blister [Recovered/Resolved]
